FAERS Safety Report 9000058 (Version 4)
Quarter: 2013Q2

REPORT INFORMATION
  Report Type: Spontaneous
  Country: FR (occurrence: FR)
  Receive Date: 20130102
  Receipt Date: 20130524
  Transmission Date: 20140414
  Serious: Yes (Other)
  Sender: FDA-Public Use
  Company Number: FR-ABBOTT-12P-056-1026427-00

PATIENT
  Age: 79 Year
  Sex: Male

DRUGS (7)
  1. RITONAVIR [Suspect]
     Indication: HIV INFECTION
  2. TRUVADA [Suspect]
     Indication: HIV INFECTION
  3. DARUNAVIR [Suspect]
     Indication: HIV INFECTION
     Dosage: REGIMEN #1
  4. EFAVIRENZ [Suspect]
     Indication: HIV INFECTION
     Dosage: REGIMEN #1
  5. MARAVIROC [Suspect]
     Indication: PRODUCT USED FOR UNKNOWN INDICATION
  6. RALTEGRAVIR [Suspect]
     Indication: PRODUCT USED FOR UNKNOWN INDICATION
  7. ATAZANAVIR W/RITONAVIR [Suspect]
     Indication: PRODUCT USED FOR UNKNOWN INDICATION

REACTIONS (2)
  - Drug reaction with eosinophilia and systemic symptoms [Recovering/Resolving]
  - Rash [Unknown]
